FAERS Safety Report 21519146 (Version 1)
Quarter: 2022Q4

REPORT INFORMATION
  Report Type: Other
  Country: CN (occurrence: None)
  Receive Date: 20221028
  Receipt Date: 20221028
  Transmission Date: 20230113
  Serious: Yes (Other)
  Sender: FDA-Public Use
  Company Number: CN-ROCHE-3207542

PATIENT
  Age: 65 Year
  Sex: Female

DRUGS (7)
  1. RITUXIMAB [Suspect]
     Active Substance: RITUXIMAB
     Indication: Waldenstrom^s macroglobulinaemia
     Dosage: MONTHLY FOR 6-8 COURSES
     Route: 042
  2. RITUXIMAB [Suspect]
     Active Substance: RITUXIMAB
     Indication: Marginal zone lymphoma
  3. BENDAMUSTINE [Suspect]
     Active Substance: BENDAMUSTINE
     Indication: Waldenstrom^s macroglobulinaemia
     Dosage: MONTHLY FOR SIX COURSES
     Route: 065
  4. BENDAMUSTINE [Suspect]
     Active Substance: BENDAMUSTINE
     Indication: Marginal zone lymphoma
  5. BORTEZOMIB [Concomitant]
     Active Substance: BORTEZOMIB
  6. DEXAMETHASONE [Concomitant]
     Active Substance: DEXAMETHASONE
  7. ZANUBRUTINIB [Concomitant]
     Active Substance: ZANUBRUTINIB

REACTIONS (5)
  - Pleural effusion [Unknown]
  - Myelosuppression [Unknown]
  - Anaemia [Unknown]
  - Diarrhoea [Unknown]
  - Infection [Unknown]
